FAERS Safety Report 7825689-6 (Version None)
Quarter: 2011Q4

REPORT INFORMATION
  Report Type: 
  Country: None (occurrence: None)
  Receive Date: 20111019
  Receipt Date: 20111015
  Transmission Date: 20120403
  Serious: No
  Sender: FDA-Public Use
  Company Number: US-BAYER-2011-100178

PATIENT
  Age: 25 Year
  Sex: Female
  Weight: 144.44 kg

DRUGS (1)
  1. MAGNEVIST [Suspect]
     Indication: NUCLEAR MAGNETIC RESONANCE IMAGING BRAIN
     Dosage: 26 ML, ONCE
     Route: 042
     Dates: start: 20111015, end: 20111015

REACTIONS (3)
  - URTICARIA [None]
  - THROAT IRRITATION [None]
  - PRURITUS [None]
